FAERS Safety Report 8468142-1 (Version None)
Quarter: 2012Q2

REPORT INFORMATION
  Report Type: 
  Country: None (occurrence: None)
  Receive Date: 20120626
  Receipt Date: 20120621
  Transmission Date: 20120825
  Serious: Yes (Disabling)
  Sender: FDA-Public Use
  Company Number: CA-ABBOTT-12P-028-0948913-00

PATIENT
  Age: 49 Year
  Sex: Male
  Weight: 108 kg

DRUGS (1)
  1. HUMIRA [Suspect]
     Indication: PRODUCT USED FOR UNKNOWN INDICATION
     Route: 058

REACTIONS (5)
  - SWOLLEN TONGUE [None]
  - RASH ERYTHEMATOUS [None]
  - ORBITAL OEDEMA [None]
  - FEELING HOT [None]
  - LIP SWELLING [None]
